FAERS Safety Report 19308723 (Version 2)
Quarter: 2021Q2

REPORT INFORMATION
  Report Type: Report from Study
  Country: DE (occurrence: DE)
  Receive Date: 20210525
  Receipt Date: 20210604
  Transmission Date: 20210717
  Serious: No
  Sender: FDA-Public Use
  Company Number: DE-TEVA-2021-DE-1914588

PATIENT
  Age: 54 Year
  Sex: Female
  Weight: 54 kg

DRUGS (10)
  1. VALDOXAN [Concomitant]
     Active Substance: AGOMELATINE
     Dosage: 100 MILLIGRAM DAILY;
     Route: 048
     Dates: start: 2015
  2. DEKRISTOL [Concomitant]
     Active Substance: CHOLECALCIFEROL
     Route: 048
  3. PARACETAMOL [Concomitant]
     Active Substance: ACETAMINOPHEN
     Route: 048
  4. GYNOKADIN [Concomitant]
     Active Substance: ESTRADIOL
  5. ALMOGRAN [Concomitant]
     Active Substance: ALMOTRIPTAN MALATE
     Route: 048
  6. L?THYROXIN [Concomitant]
     Active Substance: LEVOTHYROXINE SODIUM
     Dosage: 50 MILLIGRAM DAILY;
     Route: 048
  7. CETIRIZIN [Concomitant]
     Active Substance: CETIRIZINE HYDROCHLORIDE
     Route: 048
  8. AJOVY [Suspect]
     Active Substance: FREMANEZUMAB-VFRM
     Indication: MIGRAINE PROPHYLAXIS
     Dosage: LAST DOSE BEFORE AE ONSET: 02?MAR?2021
     Route: 058
     Dates: start: 20201208
  9. BUDIAIR [Concomitant]
     Active Substance: BUDESONIDE
     Dosage: 1 DOSAGE FORMS DAILY;
     Route: 048
  10. PANTOPRAZOL [Concomitant]
     Active Substance: PANTOPRAZOLE SODIUM
     Dosage: 20 MILLIGRAM DAILY;
     Route: 048

REACTIONS (2)
  - Vertigo [Recovered/Resolved]
  - Injection site oedema [Recovered/Resolved]

NARRATIVE: CASE EVENT DATE: 20210303
